FAERS Safety Report 7250098-0 (Version None)
Quarter: 2011Q1

REPORT INFORMATION
  Report Type: 
  Country: None (occurrence: None)
  Receive Date: 20110128
  Receipt Date: 20101221
  Transmission Date: 20110831
  Serious: Yes (Hospitalization)
  Sender: FDA-Public Use
  Company Number: US-BAYER-201035639NA

PATIENT
  Sex: Female
  Weight: 65.76 kg

DRUGS (6)
  1. ADVIL LIQUI-GELS [Concomitant]
     Dosage: 600 MG, PRN
  2. YAZ [Suspect]
     Indication: ORAL CONTRACEPTION
     Route: 048
     Dates: start: 20080101, end: 20090301
  3. VITAMINS NOS [Concomitant]
  4. DICYCLOMINE [Concomitant]
     Dosage: 10 MG, UNK
  5. TACLONEX [Concomitant]
     Indication: PSORIASIS
     Dosage: UNK
     Dates: start: 20070101
  6. HYDROCODONE BITARTRATE AND ACETAMINOPHEN [Concomitant]

REACTIONS (5)
  - CHOLELITHIASIS [None]
  - PAIN [None]
  - BILIARY COLIC [None]
  - CHOLECYSTITIS [None]
  - ABDOMINAL PAIN UPPER [None]
